FAERS Safety Report 6404766-0 (Version None)
Quarter: 2009Q4

REPORT INFORMATION
  Report Type: 
  Country: None (occurrence: None)
  Receive Date: 20091016
  Receipt Date: 20091013
  Transmission Date: 20100525
  Serious: Yes (Death)
  Sender: FDA-Public Use
  Company Number: HU-ABBOTT-09P-076-0499412-00

PATIENT
  Sex: Female

DRUGS (2)
  1. REDUCTIL 10MG [Suspect]
     Indication: OBESITY
     Route: 048
     Dates: start: 20090108, end: 20090118
  2. MYCOSIST [Concomitant]
     Indication: CANDIDIASIS
     Route: 048
     Dates: end: 20081201

REACTIONS (2)
  - ABORTION INDUCED [None]
  - DRUG EXPOSURE DURING PREGNANCY [None]
